FAERS Safety Report 6862064-5 (Version None)
Quarter: 2010Q3

REPORT INFORMATION
  Report Type: 
  Country: None (occurrence: None)
  Receive Date: 20100721
  Receipt Date: 20100713
  Transmission Date: 20110219
  Serious: Yes (Other)
  Sender: FDA-Public Use
  Company Number: US-ASTRAZENECA-2010SE33849

PATIENT
  Age: 41 Year
  Sex: Female

DRUGS (3)
  1. SEROQUEL [Suspect]
     Indication: SLEEP DISORDER
     Route: 048
     Dates: start: 20020620
  2. PAXIL [Concomitant]
     Dates: start: 20020312
  3. EFFEXOR [Concomitant]
     Dates: start: 20020101

REACTIONS (5)
  - CARDIAC DISORDER [None]
  - CARPAL TUNNEL SYNDROME [None]
  - DIABETES MELLITUS [None]
  - DIABETIC NEUROPATHY [None]
  - MYOCARDIAL INFARCTION [None]
